FAERS Safety Report 21104072 (Version 1)
Quarter: 2022Q3

REPORT INFORMATION
  Report Type: Spontaneous
  Country: GB (occurrence: GB)
  Receive Date: 20220720
  Receipt Date: 20220720
  Transmission Date: 20221027
  Serious: Yes (Other)
  Sender: FDA-Public Use
  Company Number: GB-MHRA-MED-202207161931254710-KJSPY

PATIENT
  Sex: Female
  Weight: 80 kg

DRUGS (1)
  1. SERTRALINE [Suspect]
     Active Substance: SERTRALINE HYDROCHLORIDE
     Indication: Anxiety disorder
     Dosage: 50 MILLIGRAM, QD (50 MG ONCE A DAY IN THE MORNING )
     Route: 065
     Dates: start: 20200901

REACTIONS (1)
  - Temperature regulation disorder [Not Recovered/Not Resolved]

NARRATIVE: CASE EVENT DATE: 20210101
